FAERS Safety Report 6544024-7 (Version None)
Quarter: 2010Q1

REPORT INFORMATION
  Report Type: 
  Country: None (occurrence: None)
  Receive Date: 20100120
  Receipt Date: 20100112
  Transmission Date: 20100710
  Serious: Yes (Other)
  Sender: FDA-Public Use
  Company Number: JP-PFIZER INC-2009254356

PATIENT
  Age: 61 Year
  Sex: Male

DRUGS (9)
  1. RIFABUTIN [Suspect]
     Dosage: UNK
     Dates: end: 20090101
  2. PROMETHAZINE HCL [Suspect]
     Dosage: UNK
     Route: 048
     Dates: end: 20090101
  3. MAGNESIUM OXIDE [Suspect]
     Dosage: UNK
  4. BROVARIN [Suspect]
     Dosage: UNK
  5. BARBITAL [Suspect]
     Dosage: UNK
  6. BENZALIN [Suspect]
     Dosage: UNK
  7. NEULEPTIL [Suspect]
     Dosage: UNK
     Route: 048
  8. AMINOSALICYLATE CALCIUM [Suspect]
     Dosage: UNK
     Route: 048
  9. CYCLOSERINE [Suspect]
     Dosage: 2 CAPSULES/DAY

REACTIONS (1)
  - NEUROLEPTIC MALIGNANT SYNDROME [None]
